FAERS Safety Report 4559710-8 (Version None)
Quarter: 2005Q1

REPORT INFORMATION
  Report Type: 
  Country: None (occurrence: None)
  Receive Date: 20050114
  Receipt Date: 20040821
  Transmission Date: 20050727
  Serious: Yes (Other)
  Sender: FDA-Public Use
  Company Number: FEI2004-0941

PATIENT
  Sex: Female

DRUGS (1)
  1. INTRAUTERINE COPPER CONTRACEPTIVE [Suspect]
     Indication: CONTRACEPTION
     Dosage: INTRA-UTERINE
     Route: 015
     Dates: start: 20020101

REACTIONS (4)
  - ABDOMINAL PAIN [None]
  - ASTHENIA [None]
  - ECTOPIC PREGNANCY [None]
  - NAUSEA [None]
